FAERS Safety Report 9282388 (Version 2)
Quarter: 2013Q2

REPORT INFORMATION
  Report Type: Spontaneous
  Country: US (occurrence: None)
  Receive Date: 20130506
  Receipt Date: 20130506
  Transmission Date: 20140414
  Serious: Yes (Hospitalization)
  Sender: FDA-Public Use
  Company Number: 2013P1005230

PATIENT
  Age: 45 Year
  Sex: Female

DRUGS (7)
  1. PHENERGAN [Suspect]
     Indication: NAUSEA
  2. PHENERGAN [Suspect]
     Indication: PREGNANCY
  3. REGLAN [Suspect]
  4. PRISTIQ [Concomitant]
  5. CLONAZEPAM [Concomitant]
  6. ZOLPIDEM [Concomitant]
  7. ABILIFY [Concomitant]

REACTIONS (3)
  - Depression [None]
  - Drug hypersensitivity [None]
  - Exposure during pregnancy [None]
